FAERS Safety Report 4667913-7 (Version None)
Quarter: 2005Q2

REPORT INFORMATION
  Report Type: 
  Country: None (occurrence: None)
  Receive Date: 20050520
  Receipt Date: 20050520
  Transmission Date: 20051028
  Serious: Yes (Other)
  Sender: FDA-Public Use
  Company Number: None

PATIENT
  Age: 52 Year
  Sex: Male
  Weight: 92.5 kg

DRUGS (1)
  1. CLONAZEPAM [Suspect]
     Indication: AGITATION
     Dosage: 0.75 MG, 1/2 TAB, PO
     Route: 048

REACTIONS (2)
  - PRURITUS [None]
  - RASH [None]
